FAERS Safety Report 7828068-0 (Version None)
Quarter: 2011Q4

REPORT INFORMATION
  Report Type: 
  Country: None (occurrence: None)
  Receive Date: 20111020
  Receipt Date: 20111014
  Transmission Date: 20120403
  Serious: Yes (Hospitalization)
  Sender: FDA-Public Use
  Company Number: DE-GLAXOSMITHKLINE-D0072396A

PATIENT
  Sex: Female
  Weight: 63 kg

DRUGS (3)
  1. HERCEPTIN [Concomitant]
     Indication: BREAST CANCER
     Route: 042
  2. LAPATINIB [Suspect]
     Indication: BREAST CANCER METASTATIC
     Dosage: 1250MG PER DAY
     Route: 048
     Dates: start: 20110701
  3. XELODA [Concomitant]
     Indication: BREAST CANCER METASTATIC
     Route: 048
     Dates: end: 20110601

REACTIONS (1)
  - DEEP VEIN THROMBOSIS [None]
